FAERS Safety Report 5519495-5 (Version None)
Quarter: 2007Q4

REPORT INFORMATION
  Report Type: 
  Country: None (occurrence: None)
  Receive Date: 20071116
  Receipt Date: 20071106
  Transmission Date: 20080405
  Serious: Yes (Hospitalization, Other)
  Sender: FDA-Public Use
  Company Number: US-ELI_LILLY_AND_COMPANY-US200711001981

PATIENT
  Sex: Male

DRUGS (6)
  1. BYETTA [Suspect]
     Dosage: 5 UG, 2/D
     Route: 058
     Dates: start: 20050101, end: 20050101
  2. BYETTA [Suspect]
     Dosage: 10 UG, 2/D
     Route: 058
     Dates: start: 20050101
  3. ACTOS [Concomitant]
     Indication: DIABETES MELLITUS
     Dosage: UNK, UNKNOWN
  4. GLIPIZIDE [Concomitant]
     Indication: DIABETES MELLITUS
     Dosage: UNK, UNKNOWN
  5. LISINOPRIL [Concomitant]
     Indication: HYPERTENSION
     Dosage: UNK, UNKNOWN
  6. DIURETICS [Concomitant]
     Indication: FLUID RETENTION
     Dosage: UNK, UNKNOWN

REACTIONS (8)
  - BLOOD GLUCOSE DECREASED [None]
  - DECREASED APPETITE [None]
  - FEELING JITTERY [None]
  - IRRITABILITY [None]
  - NEPHROLITHIASIS [None]
  - NERVOUSNESS [None]
  - RENAL IMPAIRMENT [None]
  - WEIGHT DECREASED [None]
